FAERS Safety Report 15333577 (Version 1)
Quarter: 2018Q3

REPORT INFORMATION
  Report Type: Spontaneous
  Country: US (occurrence: US)
  Receive Date: 20180824
  Receipt Date: 20180824
  Transmission Date: 20181010
  Serious: No
  Sender: FDA-Public Use
  Company Number: None

PATIENT
  Age: 70 Year
  Sex: Female
  Weight: 83.91 kg

DRUGS (1)
  1. FORTEO [Suspect]
     Active Substance: TERIPARATIDE
     Indication: OSTEOPOROSIS
     Dosage: UD
     Route: 058
     Dates: start: 201805

REACTIONS (5)
  - Insomnia [None]
  - Constipation [None]
  - Liver disorder [None]
  - Restlessness [None]
  - Tremor [None]
